FAERS Safety Report 7258933-7 (Version None)
Quarter: 2011Q1

REPORT INFORMATION
  Report Type: 
  Country: None (occurrence: None)
  Receive Date: 20110129
  Receipt Date: 20100614
  Transmission Date: 20110831
  Serious: No
  Sender: FDA-Public Use
  Company Number: US-ABBOTT-10P-163-0651224-00

PATIENT
  Sex: Female

DRUGS (16)
  1. DONNATAL [Concomitant]
     Indication: CROHN'S DISEASE
  2. CYMBALTA [Concomitant]
     Indication: DEPRESSION
  3. TOPAMAX [Concomitant]
     Indication: HEADACHE
  4. PROTONIX [Concomitant]
     Indication: DYSPEPSIA
  5. AZATHIOPRINE [Concomitant]
     Indication: PRODUCT USED FOR UNKNOWN INDICATION
  6. AMBIEN [Concomitant]
     Indication: INSOMNIA
     Dosage: AT BEDTIME
  7. AMITRIPTYLINE HCL [Concomitant]
     Indication: DEPRESSION
  8. KLONOPIN [Concomitant]
     Indication: ANXIETY
     Dosage: THREE TIMES A DAY AS NEEDED
  9. ABILIFY [Concomitant]
     Indication: BIPOLAR I DISORDER
  10. DEPAKOTE [Concomitant]
     Indication: BIPOLAR DISORDER
  11. HUMIRA [Suspect]
     Indication: CROHN'S DISEASE
  12. PHENERGAN [Concomitant]
     Indication: NAUSEA
  13. IMODIUM [Concomitant]
     Indication: DIARRHOEA
  14. ASACOL [Concomitant]
     Indication: CROHN'S DISEASE
  15. ENTOCORT EC [Concomitant]
     Indication: PRODUCT USED FOR UNKNOWN INDICATION
  16. TUMS [Concomitant]
     Indication: DYSPEPSIA

REACTIONS (2)
  - JOINT SWELLING [None]
  - OEDEMA PERIPHERAL [None]
